FAERS Safety Report 7339949-9 (Version None)
Quarter: 2011Q1

REPORT INFORMATION
  Report Type: 
  Country: None (occurrence: None)
  Receive Date: 20110309
  Receipt Date: 20110301
  Transmission Date: 20110831
  Serious: Yes (Other)
  Sender: FDA-Public Use
  Company Number: US-US-EMD SERONO, INC.-7045333

PATIENT
  Sex: Female

DRUGS (16)
  1. REBIF [Suspect]
     Indication: PRODUCT USED FOR UNKNOWN INDICATION
     Route: 058
     Dates: start: 20100701
  2. NEURONTIN [Concomitant]
  3. OXYBUTYNIN [Concomitant]
  4. ESTRADIOL [Concomitant]
  5. OXYCONTIN [Concomitant]
  6. AMBIEN [Concomitant]
  7. LIBRAX [Concomitant]
  8. SIMVASTATIN [Concomitant]
  9. VITAMIN B-12 [Concomitant]
  10. VICODIN ES [Concomitant]
  11. ASPIRIN [Concomitant]
  12. SOMA [Concomitant]
  13. PAXIL CR [Concomitant]
  14. FOLATE [Concomitant]
  15. VITAMIN D [Concomitant]
  16. ASCORBIC ACID [Concomitant]

REACTIONS (5)
  - OPTIC ATROPHY [None]
  - FATIGUE [None]
  - INJECTION SITE PAIN [None]
  - GLAUCOMA [None]
  - INJECTION SITE HAEMATOMA [None]
